FAERS Safety Report 18750490 (Version 3)
Quarter: 2021Q1

REPORT INFORMATION
  Report Type: Report from Study
  Country: None (occurrence: US)
  Receive Date: 20210118
  Receipt Date: 20210211
  Transmission Date: 20210419
  Serious: Yes (Hospitalization, Other)
  Sender: FDA-Public Use
  Company Number: US-ABBVIE-20K-163-3664672-00

PATIENT
  Age: 35 Year
  Sex: Male

DRUGS (2)
  1. HUMIRA [Suspect]
     Active Substance: ADALIMUMAB
     Indication: COLITIS ULCERATIVE
     Dosage: CITRATE FREE
     Route: 058
     Dates: start: 20210131
  2. HUMIRA [Suspect]
     Active Substance: ADALIMUMAB
     Indication: CROHN^S DISEASE
     Dosage: CITRATE FREE
     Route: 058
     Dates: start: 20201025, end: 202101

REACTIONS (17)
  - Fistula [Recovering/Resolving]
  - Abscess [Recovering/Resolving]
  - Papule [Not Recovered/Not Resolved]
  - Haemorrhoids [Recovering/Resolving]
  - Malaise [Unknown]
  - Depressed mood [Unknown]
  - Anxiety [Unknown]
  - Diarrhoea [Unknown]
  - Wrong technique in product usage process [Recovered/Resolved]
  - Incorrect dose administered [Recovered/Resolved]
  - Pain [Recovering/Resolving]
  - Device issue [Recovered/Resolved]
  - Loss of personal independence in daily activities [Unknown]
  - Abdominal pain [Unknown]
  - Rectal haemorrhage [Unknown]
  - Injection site pain [Recovered/Resolved]
  - Abnormal faeces [Not Recovered/Not Resolved]

NARRATIVE: CASE EVENT DATE: 2020
